FAERS Safety Report 17086081 (Version 1)
Quarter: 2019Q4

REPORT INFORMATION
  Report Type: Spontaneous
  Country: US (occurrence: US)
  Receive Date: 20191031
  Receipt Date: 20191031
  Transmission Date: 20200122
  Serious: No
  Sender: FDA-Public Use
  Company Number: None

PATIENT
  Age: 51 Year
  Sex: Male

DRUGS (1)
  1. GLATIRAMER 40MG PFS INJ (12/ BOX) [Suspect]
     Active Substance: GLATIRAMER
     Dosage: ?          OTHER FREQUENCY:OTHER;?
     Route: 058
     Dates: start: 20191015

REACTIONS (3)
  - Injection site nodule [None]
  - Injection site erythema [None]
  - Burning sensation [None]

NARRATIVE: CASE EVENT DATE: 20191031
